FAERS Safety Report 21868648 (Version 2)
Quarter: 2023Q4

REPORT INFORMATION
  Report Type: Spontaneous
  Country: US (occurrence: US)
  Receive Date: 20230117
  Receipt Date: 20231009
  Transmission Date: 20240110
  Serious: Yes (Other)
  Sender: FDA-Public Use
  Company Number: US-BRISTOL-MYERS SQUIBB COMPANY-2023-006417

PATIENT
  Age: 68 Year
  Sex: Female
  Weight: 83.46 kg

DRUGS (2)
  1. REVLIMID [Suspect]
     Active Substance: LENALIDOMIDE
     Indication: Plasma cell myeloma
     Dosage: DAILY FOR 14 DAYS
     Route: 048
     Dates: start: 20220927, end: 20230113
  2. REVLIMID [Suspect]
     Active Substance: LENALIDOMIDE
     Route: 048

REACTIONS (4)
  - Neuropathy peripheral [Unknown]
  - Off label use [Unknown]
  - Pollakiuria [Unknown]
  - Dry skin [Unknown]

NARRATIVE: CASE EVENT DATE: 20220927
